FAERS Safety Report 24033049 (Version 7)
Quarter: 2025Q3

REPORT INFORMATION
  Report Type: Spontaneous
  Country: CA (occurrence: CA)
  Receive Date: 20240701
  Receipt Date: 20250724
  Transmission Date: 20251021
  Serious: Yes (Other)
  Sender: CELLTRION
  Company Number: CA-PFIZER INC-202200916918

PATIENT

DRUGS (13)
  1. INFLIXIMAB [Suspect]
     Active Substance: INFLIXIMAB
     Indication: Product used for unknown indication
     Dates: start: 20250701
  2. INFLECTRA [Suspect]
     Active Substance: INFLIXIMAB-DYYB
     Indication: Colitis ulcerative
     Route: 042
     Dates: start: 20220912
  3. INFLECTRA [Suspect]
     Active Substance: INFLIXIMAB-DYYB
     Route: 042
     Dates: start: 202301
  4. INFLECTRA [Suspect]
     Active Substance: INFLIXIMAB-DYYB
     Route: 042
  5. INFLECTRA [Suspect]
     Active Substance: INFLIXIMAB-DYYB
     Route: 042
  6. INFLECTRA [Suspect]
     Active Substance: INFLIXIMAB-DYYB
     Route: 042
     Dates: start: 20240323
  7. INFLECTRA [Suspect]
     Active Substance: INFLIXIMAB-DYYB
     Route: 042
  8. INFLECTRA [Suspect]
     Active Substance: INFLIXIMAB-DYYB
     Route: 042
     Dates: start: 20240622
  9. INFLECTRA [Suspect]
     Active Substance: INFLIXIMAB-DYYB
     Dates: start: 20240810
  10. INFLECTRA [Suspect]
     Active Substance: INFLIXIMAB-DYYB
     Dates: start: 20240810
  11. INFLECTRA [Suspect]
     Active Substance: INFLIXIMAB-DYYB
     Route: 042
     Dates: start: 20250419
  12. INFLECTRA [Suspect]
     Active Substance: INFLIXIMAB-DYYB
     Route: 042
     Dates: start: 20250527
  13. ENTOCORT [Concomitant]
     Active Substance: BUDESONIDE

REACTIONS (12)
  - Gingival graft [Unknown]
  - Condition aggravated [Not Recovered/Not Resolved]
  - Influenza like illness [Recovered/Resolved]
  - Nasal congestion [Recovered/Resolved]
  - Oropharyngeal pain [Recovered/Resolved]
  - Fatigue [Not Recovered/Not Resolved]
  - Myalgia [Recovered/Resolved]
  - Pyrexia [Recovered/Resolved]
  - Off label use [Unknown]
  - Off label use [Unknown]
  - Intentional product misuse [Unknown]
  - Intentional product use issue [Unknown]

NARRATIVE: CASE EVENT DATE: 20220101
